FAERS Safety Report 8419980-2 (Version None)
Quarter: 2012Q2

REPORT INFORMATION
  Report Type: 
  Country: None (occurrence: None)
  Receive Date: 20120323
  Receipt Date: 20110223
  Transmission Date: 20120825
  Serious: Yes (Hospitalization)
  Sender: FDA-Public Use
  Company Number: 163-21880-11022940

PATIENT
  Age: 63 Year
  Sex: Female
  Weight: 70.7611 kg

DRUGS (7)
  1. AMITRIPTYLINE HCL [Concomitant]
  2. PRILOSEC [Concomitant]
  3. NEURONTIN [Concomitant]
  4. ACYCLOVIR [Concomitant]
  5. REVLIMID [Suspect]
     Indication: MULTIPLE MYELOMA
     Dosage: 15 MG, 1 IN 1 D, PO
     Route: 048
     Dates: start: 20070223, end: 20110215
  6. IRON (IRON) [Concomitant]
  7. AMBIEN [Concomitant]

REACTIONS (1)
  - PNEUMONIA [None]
